FAERS Safety Report 5814632-7 (Version None)
Quarter: 2008Q3

REPORT INFORMATION
  Report Type: 
  Country: None (occurrence: None)
  Receive Date: 20080718
  Receipt Date: 20070828
  Transmission Date: 20090109
  Serious: No
  Sender: FDA-Public Use
  Company Number: US-KINGPHARMUSA00001-K200701097

PATIENT

DRUGS (2)
  1. LEVOXYL [Suspect]
     Indication: PARATHYROIDECTOMY
     Dates: start: 20060101
  2. ACTONEL [Concomitant]
     Indication: OSTEOPOROSIS

REACTIONS (2)
  - PALPITATIONS [None]
  - TREMOR [None]
